FAERS Safety Report 21200079 (Version 19)
Quarter: 2025Q2

REPORT INFORMATION
  Report Type: Spontaneous
  Country: IN (occurrence: IN)
  Receive Date: 20220811
  Receipt Date: 20250529
  Transmission Date: 20250716
  Serious: Yes (Other)
  Sender: PFIZER
  Company Number: IN-PFIZER INC-2019526976

PATIENT
  Age: 43 Year
  Sex: Female

DRUGS (20)
  1. PALBOCICLIB [Suspect]
     Active Substance: PALBOCICLIB
     Indication: Breast cancer metastatic
     Route: 048
     Dates: start: 20191120
  2. PALBOCICLIB [Suspect]
     Active Substance: PALBOCICLIB
     Route: 048
     Dates: start: 202208
  3. PALBOCICLIB [Suspect]
     Active Substance: PALBOCICLIB
     Route: 048
     Dates: start: 202312
  4. LETROZOLE [Concomitant]
     Active Substance: LETROZOLE
     Dosage: 2.5 MG, 1X/DAY
     Route: 048
  5. MINERALS\VITAMINS [Concomitant]
     Active Substance: MINERALS\VITAMINS
     Dosage: 1 DF, 1X/DAY
  6. ALLOPURINOL [Concomitant]
     Active Substance: ALLOPURINOL
     Dosage: 100 MG, 1X/DAY (100MG PO ONCE DAILY X 10 DAYS)
     Route: 048
  7. ATORVASTATIN CALCIUM [Concomitant]
     Active Substance: ATORVASTATIN CALCIUM
     Dosage: 20 MG, 1X/DAY (AT BED TIME AFTER FOOD)
  8. DAROLAC [Concomitant]
     Dosage: 1 DF, 3X/DAY
  9. DIGENE [ALUMINIUM HYDROXIDE;CARMELLOSE SODIUM;DIMETICONE;MAGNESIUM HYD [Concomitant]
     Route: 048
  10. DOLO [Concomitant]
     Route: 048
  11. NEKSIUM [Concomitant]
     Dosage: 40 MG, 1X/DAY (ONCE DAILY (BBF))
     Route: 048
  12. TRIPTORELIN PAMOATE [Concomitant]
     Active Substance: TRIPTORELIN PAMOATE
     Dosage: UNK, EVERY 3 MONTHS
  13. PRALMORELIN [Concomitant]
     Active Substance: PRALMORELIN
  14. PREGABA NT [Concomitant]
     Dosage: UNK, 1X/DAY (75 MG/10 MG AT BED TIME)
     Route: 048
  15. CALCIUM\CHOLECALCIFEROL [Concomitant]
     Active Substance: CALCIUM\CHOLECALCIFEROL
     Dosage: 500 MG, 1X/DAY (1 HOUR BEFORE OR 2 HOURS AFTER FOOD)
     Route: 048
  16. URSODIOL [Concomitant]
     Active Substance: URSODIOL
     Dosage: 300 MG, 2X/DAY (12TH HOURLY)
     Route: 048
  17. ULTRACET [Concomitant]
     Active Substance: ACETAMINOPHEN\TRAMADOL HYDROCHLORIDE
     Route: 048
  18. ZOLEDRONIC ACID [Concomitant]
     Active Substance: ZOLEDRONIC ACID
     Dosage: 4 MG, MONTHLY
     Route: 042
  19. ZOLEDRONIC ACID [Concomitant]
     Active Substance: ZOLEDRONIC ACID
     Route: 042
  20. ZOLPIDEM TARTRATE [Concomitant]
     Active Substance: ZOLPIDEM TARTRATE
     Route: 048

REACTIONS (22)
  - Tooth extraction [Unknown]
  - Neutrophil count decreased [Not Recovered/Not Resolved]
  - Sleep disorder [Unknown]
  - Back pain [Unknown]
  - Anxiety [Unknown]
  - Insomnia [Unknown]
  - Arthralgia [Unknown]
  - Lipids abnormal [Unknown]
  - Pain [Recovered/Resolved]
  - White blood cell count decreased [Not Recovered/Not Resolved]
  - Platelet count decreased [Not Recovered/Not Resolved]
  - Vitamin D abnormal [Unknown]
  - Headache [Recovering/Resolving]
  - Fatigue [Unknown]
  - Depression [Unknown]
  - Psychiatric symptom [Unknown]
  - Alopecia [Unknown]
  - Blood pressure fluctuation [Unknown]
  - Otitis externa [Unknown]
  - Blood pressure increased [Unknown]
  - Hepatic function abnormal [Unknown]
  - Motion sickness [Unknown]

NARRATIVE: CASE EVENT DATE: 20240401
